FAERS Safety Report 7163051-2 (Version None)
Quarter: 2010Q4

REPORT INFORMATION
  Report Type: 
  Country: None (occurrence: None)
  Receive Date: 20101215
  Receipt Date: 20100212
  Transmission Date: 20110411
  Serious: Yes (Other)
  Sender: FDA-Public Use
  Company Number: US-PFIZER INC-2010023752

PATIENT
  Sex: Female
  Weight: 88.435 kg

DRUGS (14)
  1. LYRICA [Suspect]
     Indication: NEURALGIA
     Dosage: 50 MG, 3X/DAY
     Route: 048
     Dates: start: 20090101
  2. GLUCOTROL XL [Concomitant]
     Indication: DIABETES MELLITUS
     Dosage: 10 MG, 2X/DAY
     Route: 048
  3. LANTUS [Concomitant]
     Indication: DIABETES MELLITUS
     Dosage: 25 ML, 1X/DAY
     Route: 051
  4. ACCUPRIL [Concomitant]
     Indication: HYPERTENSION
     Dosage: 40 MG, 1X/DAY
     Route: 048
  5. LEXAPRO [Concomitant]
     Indication: DEPRESSION
     Dosage: 20 MG, 1X/DAY
     Route: 048
  6. ARMOUR THYROID [Concomitant]
     Indication: HYPOTHYROIDISM
     Dosage: 90 MG, 1X/DAY
     Route: 048
  7. ACETYLSALICYLIC ACID [Concomitant]
     Indication: BLOOD PRESSURE
     Dosage: 325 MG, 1X/DAY
     Route: 048
  8. PLAVIX [Concomitant]
     Indication: HYPERCHOLESTEROLAEMIA
     Dosage: 75 MG, 1X/DAY
     Route: 048
  9. ZETIA [Concomitant]
     Indication: HYPERCHOLESTEROLAEMIA
     Dosage: 10 MG, 1X/DAY
     Route: 048
  10. LOPID [Concomitant]
     Dosage: 600 MG, 1X/DAY
     Route: 048
     Dates: end: 20091201
  11. ALBUTEROL [Concomitant]
     Indication: HYPERSENSITIVITY
     Dosage: UNK
  12. MULTI-VITAMINS [Concomitant]
     Dosage: UNK
  13. PSEUDOEPHEDRINE [Concomitant]
     Indication: HYPERSENSITIVITY
     Dosage: UNK
  14. DIPHENHYDRAMINE [Concomitant]
     Indication: HYPERSENSITIVITY

REACTIONS (2)
  - OEDEMA PERIPHERAL [None]
  - PAIN [None]
